FAERS Safety Report 5281493-7 (Version None)
Quarter: 2007Q1

REPORT INFORMATION
  Report Type: 
  Country: None (occurrence: None)
  Receive Date: 20070323
  Receipt Date: 20070323
  Transmission Date: 20070707
  Serious: Yes (Hospitalization, Other)
  Sender: FDA-Public Use
  Company Number: None

PATIENT
  Age: 43 Year
  Sex: Female
  Weight: 62.2 kg

DRUGS (1)
  1. CHANTIX [Suspect]
     Indication: SMOKING CESSATION THERAPY
     Dosage: 0.5 MG DAILY PO
     Route: 048
     Dates: start: 20070219, end: 20070223

REACTIONS (4)
  - BLISTER [None]
  - EXTREMITY NECROSIS [None]
  - FINGER AMPUTATION [None]
  - SKIN GRAFT [None]
